FAERS Safety Report 14963098 (Version 1)
Quarter: 2018Q2

REPORT INFORMATION
  Report Type: Spontaneous
  Country: FR (occurrence: FR)
  Receive Date: 20180601
  Receipt Date: 20180601
  Transmission Date: 20180711
  Serious: Yes (Life-Threatening)
  Sender: FDA-Public Use
  Company Number: FR-TEVA-2018-FR-899584

PATIENT
  Age: 35 Year
  Sex: Male
  Weight: 84 kg

DRUGS (4)
  1. PRAZEPAM [Suspect]
     Active Substance: PRAZEPAM
     Indication: SUICIDE ATTEMPT
     Route: 048
  2. TRUVADA [Concomitant]
     Active Substance: EMTRICITABINE\TENOFOVIR DISOPROXIL FUMARATE
     Indication: HIV INFECTION
     Route: 048
  3. TIVICAY [Concomitant]
     Active Substance: DOLUTEGRAVIR SODIUM
     Indication: HIV INFECTION
     Route: 048
  4. OFLOXACINE [Suspect]
     Active Substance: OFLOXACIN
     Indication: SUICIDE ATTEMPT
     Route: 048
     Dates: start: 20170921

REACTIONS (2)
  - Poisoning deliberate [Recovered/Resolved]
  - Coma [Recovered/Resolved]

NARRATIVE: CASE EVENT DATE: 20170921
